FAERS Safety Report 5790121-3 (Version None)
Quarter: 2008Q2

REPORT INFORMATION
  Report Type: 
  Country: None (occurrence: None)
  Receive Date: 20080626
  Receipt Date: 20080221
  Transmission Date: 20081010
  Serious: No
  Sender: FDA-Public Use
  Company Number: A0680816A

PATIENT
  Age: 39 Year
  Sex: Female
  Weight: 84.1 kg

DRUGS (1)
  1. ALLI [Suspect]
     Indication: DRUG USE FOR UNKNOWN INDICATION

REACTIONS (11)
  - ARTHROPATHY [None]
  - DRUG INEFFECTIVE [None]
  - FLATULENCE [None]
  - FLUID RETENTION [None]
  - FOOD CRAVING [None]
  - FREQUENT BOWEL MOVEMENTS [None]
  - GASTROINTESTINAL DISORDER [None]
  - MALAISE [None]
  - MENSTRUATION IRREGULAR [None]
  - MUSCULOSKELETAL DISCOMFORT [None]
  - PREMENSTRUAL SYNDROME [None]
